FAERS Safety Report 14492577 (Version 2)
Quarter: 2018Q1

REPORT INFORMATION
  Report Type: Report from Study
  Country: CO (occurrence: CO)
  Receive Date: 20180206
  Receipt Date: 20180212
  Transmission Date: 20180509
  Serious: Yes (Hospitalization)
  Sender: FDA-Public Use
  Company Number: CO-ASTELLAS-2018US006431

PATIENT
  Age: 86 Year
  Sex: Male
  Weight: 62 kg

DRUGS (1)
  1. ENZALUTAMIDE [Suspect]
     Active Substance: ENZALUTAMIDE
     Indication: HORMONE-REFRACTORY PROSTATE CANCER
     Route: 048
     Dates: start: 20171122

REACTIONS (6)
  - Diarrhoea [Unknown]
  - Joint injury [Unknown]
  - Dizziness [Not Recovered/Not Resolved]
  - Limb injury [Unknown]
  - Disorientation [Not Recovered/Not Resolved]
  - Fall [Recovered/Resolved]

NARRATIVE: CASE EVENT DATE: 20180127
